FAERS Safety Report 15385763 (Version 2)
Quarter: 2018Q4

REPORT INFORMATION
  Report Type: Spontaneous
  Country: PH (occurrence: PH)
  Receive Date: 20180914
  Receipt Date: 20181004
  Transmission Date: 20190204
  Serious: Yes (Hospitalization, Other)
  Sender: FDA-Public Use
  Company Number: PH-009507513-1809PHL004715

PATIENT
  Age: 71 Year
  Sex: Male

DRUGS (4)
  1. DOXYCYCLINE. [Suspect]
     Active Substance: DOXYCYCLINE
     Dosage: UNK
     Dates: start: 2017
  2. LOSARTAN POTASSIUM. [Suspect]
     Active Substance: LOSARTAN POTASSIUM
     Route: 048
  3. JANUVIA [Suspect]
     Active Substance: SITAGLIPTIN PHOSPHATE
     Indication: DIABETES MELLITUS
     Dosage: UNK
     Route: 048
     Dates: end: 2018
  4. PREDNISONE. [Suspect]
     Active Substance: PREDNISONE
     Dosage: UNK
     Dates: start: 2017

REACTIONS (9)
  - Pemphigoid [Recovering/Resolving]
  - Spinal fracture [Unknown]
  - Neurodermatitis [Unknown]
  - Mood altered [Unknown]
  - Osteoporosis [Unknown]
  - Renal failure [Unknown]
  - Depression [Unknown]
  - Hypotension [Unknown]
  - Fracture [Unknown]

NARRATIVE: CASE EVENT DATE: 2017
